FAERS Safety Report 11132944 (Version 1)
Quarter: 2015Q2

REPORT INFORMATION
  Report Type: Report from Study
  Country: BR (occurrence: BR)
  Receive Date: 20150522
  Receipt Date: 20150522
  Transmission Date: 20150821
  Serious: Yes (Death, Hospitalization, Other)
  Sender: FDA-Public Use
  Company Number: PHHY2015BR060273

PATIENT
  Sex: Male
  Weight: 84 kg

DRUGS (1)
  1. EXELON [Suspect]
     Active Substance: RIVASTIGMINE TARTRATE
     Indication: DEMENTIA ALZHEIMER^S TYPE
     Dosage: 2 DF, QD
     Route: 065

REACTIONS (7)
  - Lung neoplasm malignant [Fatal]
  - Bone cancer [Fatal]
  - Loss of consciousness [Fatal]
  - Hepatic cancer [Fatal]
  - Weight decreased [Fatal]
  - Neoplasm malignant [Fatal]
  - Brain neoplasm malignant [Fatal]

NARRATIVE: CASE EVENT DATE: 2014
